FAERS Safety Report 13735037 (Version 2)
Quarter: 2018Q3

REPORT INFORMATION
  Report Type: Spontaneous
  Country: AR (occurrence: AR)
  Receive Date: 20170710
  Receipt Date: 20180920
  Transmission Date: 20181010
  Serious: Yes (Other)
  Sender: FDA-Public Use
  Company Number: AR-AMGEN-ARGSP2017102267

PATIENT
  Age: 69 Year
  Sex: Female

DRUGS (4)
  1. ENBREL [Suspect]
     Active Substance: ETANERCEPT
     Indication: RHEUMATOID ARTHRITIS
     Dosage: 50 MG, QWK
     Route: 065
     Dates: start: 20050920
  2. LEFLUNOMIDA [Concomitant]
     Active Substance: LEFLUNOMIDE
     Dosage: 1 DF, DAILY (AT NIGHT)
     Dates: start: 2013
  3. NAPROXENO / PARACETAMOL [Concomitant]
     Dosage: 2 DF, DAILY
     Dates: start: 1993
  4. CLONAZEPAN [Concomitant]
     Active Substance: CLONAZEPAM
     Dosage: 3 MG, DAILY (AT NIGHT)
     Dates: start: 1993

REACTIONS (1)
  - Pulmonary mass [Recovered/Resolved]

NARRATIVE: CASE EVENT DATE: 201611
